FAERS Safety Report 20932606 (Version 1)
Quarter: 2022Q2

REPORT INFORMATION
  Report Type: Spontaneous
  Country: FR (occurrence: FR)
  Receive Date: 20220608
  Receipt Date: 20220608
  Transmission Date: 20220721
  Serious: Yes (Hospitalization)
  Sender: FDA-Public Use
  Company Number: None

PATIENT
  Age: 85 Year
  Sex: Male
  Weight: 82.6 kg

DRUGS (6)
  1. CLOPIDOGREL [Suspect]
     Active Substance: CLOPIDOGREL BISULFATE
     Indication: Cardiovascular event prophylaxis
     Dosage: UNIT DOSE : 1 DF , FREQUENCY TIME : 1 DAY , DURATION : 858 DAYS, CLOPIDOGREL (CHLORHYDRATE DE)
     Route: 048
     Dates: start: 20191231, end: 20220507
  2. PRITOR [Concomitant]
     Indication: Hypertension
     Dosage: STRENGTH : 40 MG , UNIT DOSE : 1 DF , FREQUENCY TIME : 1 DAY , THERAPY START DATE : ASKU
     Route: 048
     Dates: end: 20220509
  3. DICLOFENAC [Concomitant]
     Active Substance: DICLOFENAC
     Indication: Arthralgia
     Dosage: THERAPY START DATE : ASKU , UNIT DOSE : 1 DF , FREQUENCY TIME : 1 DAY
     Route: 003
  4. DAFALGAN [Concomitant]
     Active Substance: ACETAMINOPHEN
     Indication: Pain
     Dosage: THERAPY START DATE : ASKU , STRENGTH : 1 G
     Route: 048
  5. METEOSPASMYL [Concomitant]
     Dosage: THERAPY START DATE : ASKU
     Route: 048
     Dates: end: 20220507
  6. GAVISCON [Concomitant]
     Active Substance: ALUMINUM HYDROXIDE\MAGNESIUM CARBONATE
     Dosage: THERAPY START DATE : ASKU
     Route: 048
     Dates: end: 20220507

REACTIONS (1)
  - Cerebral haematoma [Recovering/Resolving]

NARRATIVE: CASE EVENT DATE: 20220507
